FAERS Safety Report 25255105 (Version 2)
Quarter: 2025Q2

REPORT INFORMATION
  Report Type: Spontaneous
  Country: US (occurrence: US)
  Receive Date: 20250430
  Receipt Date: 20250514
  Transmission Date: 20250717
  Serious: Yes (Other)
  Sender: TEVA
  Company Number: US-TEVA-VS-3324435

PATIENT
  Age: 34 Year
  Sex: Male

DRUGS (1)
  1. MYCOPHENOLATE MOFETIL [Suspect]
     Active Substance: MYCOPHENOLATE MOFETIL
     Indication: Glomerulonephritis
     Route: 065

REACTIONS (2)
  - Gastrointestinal lymphoma [Recovered/Resolved]
  - T-cell lymphoma [Recovered/Resolved]
